FAERS Safety Report 18496173 (Version 1)
Quarter: 2020Q4

REPORT INFORMATION
  Report Type: Spontaneous
  Country: US (occurrence: US)
  Receive Date: 20201112
  Receipt Date: 20201112
  Transmission Date: 20210114
  Serious: No
  Sender: FDA-Public Use
  Company Number: US-CELGENEUS-USA-20201100501

PATIENT
  Age: 73 Year
  Sex: Male
  Weight: 101.7 kg

DRUGS (1)
  1. POMALYST [Suspect]
     Active Substance: POMALIDOMIDE
     Indication: PLASMA CELL MYELOMA
     Dosage: 4 MILLIGRAM
     Route: 048
     Dates: start: 20200407

REACTIONS (3)
  - Weight decreased [Not Recovered/Not Resolved]
  - Laboratory test abnormal [Not Recovered/Not Resolved]
  - Appetite disorder [Not Recovered/Not Resolved]

NARRATIVE: CASE EVENT DATE: 202006
